FAERS Safety Report 6153808-9 (Version None)
Quarter: 2009Q2

REPORT INFORMATION
  Report Type: 
  Country: None (occurrence: None)
  Receive Date: 20090414
  Receipt Date: 20080310
  Transmission Date: 20091009
  Serious: Yes (Death, Hospitalization, Other)
  Sender: FDA-Public Use
  Company Number: US-ASTRAZENECA-2007UW16922

PATIENT
  Age: 14334 Day
  Sex: Male
  Weight: 156.9 kg

DRUGS (23)
  1. SEROQUEL [Suspect]
     Indication: SCHIZOPHRENIA
     Route: 048
     Dates: start: 20020101, end: 20060401
  2. SEROQUEL [Suspect]
     Dosage: 100-675 MG
     Route: 048
     Dates: start: 20020101
  3. PAXIL [Concomitant]
     Dates: start: 20020501
  4. EFFEXOR [Concomitant]
     Dates: start: 20020501
  5. RESTORIL [Concomitant]
     Dates: start: 20020501
  6. INSULIN [Concomitant]
     Dates: start: 20051101
  7. ACTOS [Concomitant]
     Dates: start: 20051101
  8. ASPIRIN [Concomitant]
     Dates: start: 20041201
  9. SOMA [Concomitant]
     Dates: start: 20041201
  10. XANAX [Concomitant]
     Dates: start: 20021201
  11. ABILIFY [Concomitant]
     Dates: start: 20050101
  12. RISPERDAL [Concomitant]
  13. DILAUDID [Concomitant]
  14. TRAZODONE [Concomitant]
     Dates: start: 20021201
  15. LEXAPRO [Concomitant]
  16. VISTARIL [Concomitant]
  17. NORVASC [Concomitant]
  18. LOPID [Concomitant]
  19. AVALIDE [Concomitant]
  20. GLUCOPHAGE [Concomitant]
  21. GLUCOTROL [Concomitant]
  22. VICODIN [Concomitant]
     Dates: start: 20050501
  23. PHENERGAN [Concomitant]

REACTIONS (15)
  - ANXIETY [None]
  - DIABETES MELLITUS [None]
  - DIABETIC RETINOPATHY [None]
  - FOOT DEFORMITY [None]
  - HYPERLIPIDAEMIA [None]
  - HYPERTENSION [None]
  - HYPERTRIGLYCERIDAEMIA [None]
  - METABOLIC SYNDROME [None]
  - MYALGIA [None]
  - NEPHROLITHIASIS [None]
  - NEUROPATHY PERIPHERAL [None]
  - OBESITY [None]
  - PAIN IN EXTREMITY [None]
  - TRIGGER FINGER [None]
  - WRIST FRACTURE [None]
